FAERS Safety Report 8817667 (Version 2)
Quarter: 2012Q4

REPORT INFORMATION
  Report Type: 
  Country: US (occurrence: US)
  Receive Date: 20121001
  Receipt Date: 20121106
  Transmission Date: 20130627
  Serious: Yes (Death, Hospitalization)
  Sender: FDA-Public Use
  Company Number: PHEH2012US019024

PATIENT
  Age: 36 Year
  Sex: Female

DRUGS (1)
  1. EXJADE [Suspect]
     Indication: IRON OVERLOAD
     Dosage: 2000 mg, QD
     Route: 048
     Dates: start: 20120612, end: 20120830

REACTIONS (17)
  - Death [Fatal]
  - Multi-organ failure [Unknown]
  - Hypoglycaemia [Unknown]
  - Chronic hepatitis C [Unknown]
  - Pain [Unknown]
  - Haematuria [Unknown]
  - Oliguria [Unknown]
  - Haemosiderosis [Unknown]
  - Oropharyngeal neoplasm benign [Unknown]
  - Urinary tract infection [Unknown]
  - Jaundice [Unknown]
  - Sepsis [Unknown]
  - Hepatic cirrhosis [Unknown]
  - Hepatitis [Unknown]
  - Hepatic failure [Unknown]
  - Renal failure acute [Unknown]
  - Sickle cell anaemia with crisis [Unknown]
